FAERS Safety Report 6129614-8 (Version None)
Quarter: 2009Q1

REPORT INFORMATION
  Report Type: 
  Country: None (occurrence: None)
  Receive Date: 20090324
  Receipt Date: 20090312
  Transmission Date: 20090719
  Serious: Yes (Hospitalization, Other)
  Sender: FDA-Public Use
  Company Number: PHHY2009CA09279

PATIENT
  Sex: Male
  Weight: 20.6 kg

DRUGS (8)
  1. NEORAL [Suspect]
     Indication: FOCAL SEGMENTAL GLOMERULOSCLEROSIS
     Dosage: 60 MG, BID
     Route: 048
     Dates: start: 20080420, end: 20090113
  2. NEORAL [Suspect]
     Dosage: 120 MG, BID
  3. NEORAL [Suspect]
     Dosage: 120 MG, TID
  4. ENALAPRIL [Concomitant]
     Indication: HYPERTENSION
     Dosage: 3 MG
  5. ENALAPRIL [Concomitant]
     Dosage: 3 MG, BID
     Route: 048
  6. ENALAPRIL [Concomitant]
     Dosage: 4 MG, BID
     Route: 048
  7. LOSARTAN [Concomitant]
     Dosage: 25 MG, QD
  8. PREDNISOLONE [Concomitant]
     Dosage: 40 MG/M2
     Dates: end: 20080601

REACTIONS (15)
  - ABNORMAL BEHAVIOUR [None]
  - BALANCE DISORDER [None]
  - COGNITIVE DISORDER [None]
  - CONFUSIONAL STATE [None]
  - DEMENTIA [None]
  - DISEASE RECURRENCE [None]
  - DRUG INEFFECTIVE [None]
  - ELECTROENCEPHALOGRAM ABNORMAL [None]
  - HEMIPARESIS [None]
  - NEPHROTIC SYNDROME [None]
  - PNEUMONIA [None]
  - PROTEINURIA [None]
  - PSYCHOMOTOR HYPERACTIVITY [None]
  - WEIGHT DECREASED [None]
  - WEIGHT INCREASED [None]
